FAERS Safety Report 9898426 (Version 1)
Quarter: 2014Q1

REPORT INFORMATION
  Report Type: Spontaneous
  Country: US (occurrence: US)
  Receive Date: 20140214
  Receipt Date: 20140214
  Transmission Date: 20141002
  Serious: No
  Sender: FDA-Public Use
  Company Number: US-009507513-1402USA006395

PATIENT
  Age: 34 Year
  Sex: Female
  Weight: 54.42 kg

DRUGS (1)
  1. NUVARING [Suspect]
     Indication: MENSTRUATION IRREGULAR
     Dosage: CONTINUOUSLY
     Route: 067
     Dates: start: 201102

REACTIONS (7)
  - Drug prescribing error [Unknown]
  - Metrorrhagia [Not Recovered/Not Resolved]
  - Muscle spasms [Not Recovered/Not Resolved]
  - Headache [Not Recovered/Not Resolved]
  - Abdominal discomfort [Unknown]
  - Diarrhoea [Unknown]
  - Inappropriate schedule of drug administration [Unknown]
